FAERS Safety Report 9126729 (Version 1)
Quarter: 2013Q1

REPORT INFORMATION
  Report Type: Spontaneous
  Country: US (occurrence: US)
  Receive Date: 20130228
  Receipt Date: 20130228
  Transmission Date: 20140127
  Serious: No
  Sender: FDA-Public Use
  Company Number: US-BAYER-2013-024892

PATIENT
  Age: 88 Year
  Sex: Female
  Weight: 59 kg

DRUGS (2)
  1. ALEVE CAPLET/TABLET,MIDOL EXTENDED RELIEF CAPLET [Suspect]
     Dosage: 2 DF, QD WITH FOOD
     Route: 048
     Dates: start: 2012
  2. ANTIHYPERTENSIVES [Concomitant]
     Dosage: UNK

REACTIONS (1)
  - Incorrect drug administration duration [None]
